FAERS Safety Report 25274364 (Version 5)
Quarter: 2025Q2

REPORT INFORMATION
  Report Type: Spontaneous
  Country: US (occurrence: US)
  Receive Date: 20250506
  Receipt Date: 20250523
  Transmission Date: 20250717
  Serious: Yes (Death, Hospitalization, Other)
  Sender: SANDOZ
  Company Number: US-SANDOZ-SDZ2025US027955

PATIENT
  Age: 63 Year
  Sex: Female

DRUGS (3)
  1. CARBOPLATIN [Suspect]
     Active Substance: CARBOPLATIN
     Indication: Ovarian cancer
     Route: 065
     Dates: start: 20250414
  2. CEFEPIME [Concomitant]
     Active Substance: CEFEPIME HYDROCHLORIDE
     Indication: Product used for unknown indication
     Route: 065
     Dates: start: 20250508, end: 20250510
  3. VANCOMYCIN [Concomitant]
     Active Substance: VANCOMYCIN
     Indication: Product used for unknown indication
     Route: 065
     Dates: start: 20250508, end: 20250510

REACTIONS (20)
  - Failure to thrive [Fatal]
  - Intestinal obstruction [Recovering/Resolving]
  - Metastases to lung [Recovering/Resolving]
  - Metastases to liver [Recovering/Resolving]
  - Ascites [Recovering/Resolving]
  - Hypokalaemia [Recovering/Resolving]
  - Neuropathy peripheral [Recovering/Resolving]
  - Retroperitoneal lymphadenopathy [Not Recovered/Not Resolved]
  - Oedema peripheral [Recovering/Resolving]
  - Pelvic neoplasm [Recovering/Resolving]
  - Hypocalcaemia [Recovering/Resolving]
  - Hypoalbuminaemia [Recovering/Resolving]
  - Hyponatraemia [Recovering/Resolving]
  - Diarrhoea [Recovering/Resolving]
  - Asthenia [Recovering/Resolving]
  - Anaemia [Recovering/Resolving]
  - Ventricular extrasystoles [Recovering/Resolving]
  - Disease progression [Recovering/Resolving]
  - Colitis ischaemic [Recovering/Resolving]
  - Failure to thrive [Recovering/Resolving]

NARRATIVE: CASE EVENT DATE: 20250428
